FAERS Safety Report 5841244-1 (Version None)
Quarter: 2008Q3

REPORT INFORMATION
  Report Type: 
  Country: None (occurrence: None)
  Receive Date: 20080731
  Receipt Date: 20080614
  Transmission Date: 20090109
  Serious: No
  Sender: FDA-Public Use
  Company Number: US200806003529

PATIENT
  Age: 68 Year
  Sex: Female
  Weight: 111.6 kg

DRUGS (6)
  1. BYETTA [Suspect]
     Indication: INSULIN-REQUIRING TYPE 2 DIABETES MELLITUS
     Dosage: 5 UG, 2/D, SUBCUTANEOUS
     Route: 058
     Dates: start: 20080614, end: 20080614
  2. METFORMIN HCL [Concomitant]
  3. LANTUS [Concomitant]
  4. NOVOLOG [Concomitant]
  5. NEXIUM [Concomitant]
  6. PROTONIX [Concomitant]

REACTIONS (3)
  - BLOOD GLUCOSE INCREASED [None]
  - NAUSEA [None]
  - RETCHING [None]
